FAERS Safety Report 17300775 (Version 1)
Quarter: 2020Q1

REPORT INFORMATION
  Report Type: Spontaneous
  Country: BR (occurrence: BR)
  Receive Date: 20200122
  Receipt Date: 20200122
  Transmission Date: 20200409
  Serious: Yes (Other)
  Sender: FDA-Public Use
  Company Number: BR-JNJFOC-20200123335

PATIENT
  Sex: Female
  Weight: 71 kg

DRUGS (1)
  1. REMICADE [Suspect]
     Active Substance: INFLIXIMAB
     Indication: ANKYLOSING SPONDYLITIS
     Route: 042
     Dates: start: 2010, end: 2012

REACTIONS (5)
  - Arthritis [Not Recovered/Not Resolved]
  - Liver function test abnormal [Recovered/Resolved]
  - Alopecia [Recovered/Resolved]
  - Lupus-like syndrome [Recovered/Resolved]
  - Urinary tract infection [Recovered/Resolved]
